FAERS Safety Report 12716856 (Version 1)
Quarter: 2016Q3

REPORT INFORMATION
  Report Type: Spontaneous
  Country: JP (occurrence: JP)
  Receive Date: 20160906
  Receipt Date: 20160906
  Transmission Date: 20161109
  Serious: Yes (Hospitalization)
  Sender: FDA-Public Use
  Company Number: JP-BAYER-2016-161884

PATIENT
  Age: 70 Year
  Sex: Male
  Weight: 73.8 kg

DRUGS (19)
  1. ARTIST [Concomitant]
     Active Substance: CARVEDILOL
     Dosage: 5 MG, OM
     Route: 048
     Dates: start: 20160125
  2. SPIRONOLACTONE. [Concomitant]
     Active Substance: SPIRONOLACTONE
     Dosage: 25 MG, OM
     Route: 048
  3. PARIET [Concomitant]
     Active Substance: RABEPRAZOLE SODIUM
     Dosage: 10 MG, OM
     Route: 048
     Dates: start: 20160125
  4. URINORM [Concomitant]
     Active Substance: BENZBROMARONE
     Dosage: 50 MG, OM
     Route: 048
     Dates: start: 20160125
  5. VILDAGLIPTIN [Concomitant]
     Active Substance: VILDAGLIPTIN
     Dosage: 50 MG, OM
     Route: 048
     Dates: start: 20160125, end: 20160205
  6. FUROSEMIDE. [Concomitant]
     Active Substance: FUROSEMIDE
     Dosage: 20 MG, OM
     Route: 048
     Dates: start: 20160125
  7. CILNIDIPINE [Concomitant]
     Active Substance: CILNIDIPINE
     Dosage: 10 MG, BID
     Route: 048
  8. SIGMART [Concomitant]
     Active Substance: NICORANDIL
     Dosage: 5 MG, TID
     Route: 048
  9. WARFARIN [Concomitant]
     Active Substance: WARFARIN
     Dosage: UNK
     Route: 048
     Dates: start: 20160119
  10. ARGATROBAN. [Concomitant]
     Active Substance: ARGATROBAN
     Dosage: UNK
     Dates: start: 20160122
  11. XARELTO [Suspect]
     Active Substance: RIVAROXABAN
     Indication: CEREBROVASCULAR ACCIDENT PROPHYLAXIS
     Dosage: 10 MG, QD
     Route: 048
     Dates: start: 20160126, end: 20160205
  12. OLMETEC [Concomitant]
     Active Substance: OLMESARTAN MEDOXOMIL
     Dosage: 20 MG, BID
     Route: 048
     Dates: start: 20160125, end: 20160208
  13. XARELTO [Suspect]
     Active Substance: RIVAROXABAN
     Indication: ATRIAL FIBRILLATION
  14. BAYASPIRIN [Suspect]
     Active Substance: ASPIRIN
     Dosage: UNK
     Route: 048
     Dates: start: 20160126
  15. HEPARIN [Suspect]
     Active Substance: HEPARIN SODIUM
     Dosage: UNK
  16. AMARYL [Concomitant]
     Active Substance: GLIMEPIRIDE
     Dosage: 0.5 MG, OM
     Route: 048
  17. BEZATOL [Concomitant]
     Active Substance: BEZAFIBRATE
     Dosage: 200 MG, BID
     Route: 054
  18. FRANDOL [Concomitant]
     Active Substance: ISOSORBIDE DINITRATE
     Dosage: DAILY DOSE 40 MG
     Route: 062
  19. ADALAT CC [Suspect]
     Active Substance: NIFEDIPINE
     Dosage: UNK
     Dates: start: 20160125

REACTIONS (1)
  - Cardiac tamponade [Recovering/Resolving]

NARRATIVE: CASE EVENT DATE: 201602
